FAERS Safety Report 8277358-9 (Version None)
Quarter: 2012Q2

REPORT INFORMATION
  Report Type: 
  Country: None (occurrence: None)
  Receive Date: 20120412
  Receipt Date: 20120404
  Transmission Date: 20120825
  Serious: Yes (Hospitalization, Other)
  Sender: FDA-Public Use
  Company Number: US-BAYER-2011-095606

PATIENT
  Age: 53 Year
  Sex: Female
  Weight: 84 kg

DRUGS (10)
  1. AUGMENTIN '125' [Concomitant]
  2. YASMIN [Suspect]
     Indication: MENOPAUSE
  3. AMPICILLIN [Concomitant]
  4. CELEXA [Concomitant]
     Indication: DEPRESSION
     Dosage: 60 MG, UNK
     Route: 048
  5. YASMIN [Suspect]
     Indication: MENSTRUATION IRREGULAR
     Dosage: UNK
     Dates: start: 20030301, end: 20030601
  6. PRILOSEC [Concomitant]
     Indication: GASTROOESOPHAGEAL REFLUX DISEASE
  7. PREDNISONE TAB [Concomitant]
  8. NEURONTIN [Concomitant]
     Indication: BACK PAIN
  9. TYLENOL (CAPLET) [Concomitant]
  10. COUMADIN [Concomitant]

REACTIONS (4)
  - PAIN [None]
  - EMOTIONAL DISTRESS [None]
  - DEEP VEIN THROMBOSIS [None]
  - PULMONARY EMBOLISM [None]
